FAERS Safety Report 7354861-7 (Version None)
Quarter: 2011Q1

REPORT INFORMATION
  Report Type: 
  Country: None (occurrence: None)
  Receive Date: 20110316
  Receipt Date: 20110310
  Transmission Date: 20110831
  Serious: Yes (Other)
  Sender: FDA-Public Use
  Company Number: US-ABBOTT-11P-163-0710473-00

PATIENT
  Sex: Male
  Weight: 93.07 kg

DRUGS (1)
  1. HUMIRA [Suspect]
     Indication: CROHN'S DISEASE
     Dosage: 1 IN 2 WEEKS, INITIAL START IN A STUDY
     Route: 058
     Dates: start: 20030901, end: 20110301

REACTIONS (3)
  - DEMYELINATION [None]
  - CONVULSION [None]
  - CEREBRAL DISORDER [None]
